FAERS Safety Report 6189400-X (Version None)
Quarter: 2009Q2

REPORT INFORMATION
  Report Type: 
  Country: None (occurrence: None)
  Receive Date: 20090512
  Receipt Date: 20090501
  Transmission Date: 20091009
  Serious: Yes (Death, Hospitalization)
  Sender: FDA-Public Use
  Company Number: 090505-0000684

PATIENT
  Age: 19 Month
  Sex: Male
  Weight: 16 kg

DRUGS (2)
  1. COSMEGEN [Suspect]
     Indication: RENAL NEOPLASM
     Dosage: ; QW; IV
     Route: 042
  2. VINCRISTINE [Suspect]
     Indication: RENAL NEOPLASM
     Dosage: 1.5 MG/M882; QW; IV
     Route: 042

REACTIONS (12)
  - ACTIVATED PARTIAL THROMBOPLASTIN TIME PROLONGED [None]
  - ASCITES [None]
  - BLOOD LACTIC ACID INCREASED [None]
  - FIBRIN D DIMER INCREASED [None]
  - HAEMOGLOBIN DECREASED [None]
  - HEPATOMEGALY [None]
  - HYPOGLYCAEMIA [None]
  - LETHARGY [None]
  - MULTI-ORGAN FAILURE [None]
  - PLATELET COUNT DECREASED [None]
  - PROTHROMBIN TIME PROLONGED [None]
  - VENOOCCLUSIVE LIVER DISEASE [None]
